FAERS Safety Report 16752012 (Version 1)
Quarter: 2019Q3

REPORT INFORMATION
  Report Type: Report from Study
  Country: GB (occurrence: GB)
  Receive Date: 20190828
  Receipt Date: 20190828
  Transmission Date: 20191005
  Serious: Yes (Hospitalization)
  Sender: FDA-Public Use
  Company Number: PHHY2019GB199951

PATIENT
  Age: 62 Year
  Sex: Female

DRUGS (1)
  1. COSENTYX [Suspect]
     Active Substance: SECUKINUMAB
     Indication: PRODUCT USED FOR UNKNOWN INDICATION
     Dosage: 150 MG, QMO (PRE-FILLED PEN)
     Route: 065
     Dates: start: 20190208

REACTIONS (2)
  - Chest pain [Unknown]
  - Product storage error [Unknown]

NARRATIVE: CASE EVENT DATE: 20190823
